FAERS Safety Report 10390045 (Version 2)
Quarter: 2014Q3

REPORT INFORMATION
  Report Type: Spontaneous
  Country: US (occurrence: US)
  Receive Date: 20140818
  Receipt Date: 20140818
  Transmission Date: 20150326
  Serious: No
  Sender: FDA-Public Use
  Company Number: US-MALLINCKRODT-T201304279

PATIENT
  Age: 11 Year
  Sex: Female

DRUGS (1)
  1. CYSTO-CONRAY II [Suspect]
     Active Substance: IOTHALAMATE MEGLUMINE
     Indication: URODYNAMICS MEASUREMENT
     Dosage: 226 ML, SINGLE
     Dates: start: 20130828, end: 20130828

REACTIONS (1)
  - Hypersensitivity [Recovered/Resolved]

NARRATIVE: CASE EVENT DATE: 20130828
